FAERS Safety Report 13179576 (Version 1)
Quarter: 2017Q1

REPORT INFORMATION
  Report Type: Spontaneous
  Country: US (occurrence: US)
  Receive Date: 20170202
  Receipt Date: 20170202
  Transmission Date: 20170428
  Serious: Yes (Life-Threatening, Hospitalization)
  Sender: FDA-Public Use
  Company Number: None

PATIENT
  Age: 31 Year
  Sex: Male
  Weight: 77.4 kg

DRUGS (9)
  1. APIXIBAN [Concomitant]
     Active Substance: APIXABAN
  2. OMEPRAZOLE. [Concomitant]
     Active Substance: OMEPRAZOLE
  3. FEXOFENADINE [Concomitant]
     Active Substance: FEXOFENADINE\FEXOFENADINE HYDROCHLORIDE
  4. MIRTAZEPINE [Concomitant]
     Active Substance: MIRTAZAPINE
  5. QUETIAPINE. [Suspect]
     Active Substance: QUETIAPINE
     Indication: PSYCHOTIC DISORDER
     Dosage: ?          QUANTITY:1 TABLET(S);?
     Route: 048
  6. BISOPOROL [Concomitant]
  7. ZOMORPH [Concomitant]
     Active Substance: MORPHINE SULFATE
  8. HALOPERIDOL 5MG [Suspect]
     Active Substance: HALOPERIDOL
     Indication: PSYCHOTIC DISORDER
     Dosage: ?          QUANTITY:1 TABLET(S);?
     Route: 048
  9. CYCLIZINE [Concomitant]
     Active Substance: CYCLIZINE

REACTIONS (2)
  - Pain [None]
  - Muscle spasms [None]

NARRATIVE: CASE EVENT DATE: 20150107
